FAERS Safety Report 8280964-9 (Version None)
Quarter: 2012Q2

REPORT INFORMATION
  Report Type: 
  Country: None (occurrence: None)
  Receive Date: 20120412
  Receipt Date: 20120330
  Transmission Date: 20120825
  Serious: Yes (Hospitalization)
  Sender: FDA-Public Use
  Company Number: FR-BAXTER-2012BAX001907

PATIENT
  Sex: Male

DRUGS (3)
  1. URAPIDIL [Suspect]
     Indication: HYPERTENSION
     Route: 065
     Dates: start: 20120217
  2. EXTRANEAL, SOLUTION POUR DIALYSE PERITONEALE [Suspect]
     Indication: PERITONEAL DIALYSIS
     Route: 033
     Dates: start: 20120307, end: 20120309
  3. OFLOXACIN [Suspect]
     Indication: INFECTION PROPHYLAXIS
     Route: 065
     Dates: start: 20120214

REACTIONS (2)
  - DELIRIUM [None]
  - TOXIC EPIDERMAL NECROLYSIS [None]
